FAERS Safety Report 14377906 (Version 1)
Quarter: 2018Q1

REPORT INFORMATION
  Report Type: Spontaneous
  Country: US (occurrence: US)
  Receive Date: 20180111
  Receipt Date: 20180111
  Transmission Date: 20180509
  Serious: Yes (Other)
  Sender: FDA-Public Use
  Company Number: US-DEPOMED, INC.-US-2018DEP000001

PATIENT

DRUGS (1)
  1. GRALISE [Suspect]
     Active Substance: GABAPENTIN
     Indication: TYPE 2 DIABETES MELLITUS
     Dosage: 1800 MG, QD
     Route: 048
     Dates: start: 20160122

REACTIONS (3)
  - Intracardiac thrombus [Recovering/Resolving]
  - Heart rate irregular [Recovering/Resolving]
  - Product use in unapproved indication [Not Recovered/Not Resolved]

NARRATIVE: CASE EVENT DATE: 20160122
